FAERS Safety Report 22959825 (Version 4)
Quarter: 2024Q4

REPORT INFORMATION
  Report Type: Spontaneous
  Country: US (occurrence: US)
  Receive Date: 20230920
  Receipt Date: 20241004
  Transmission Date: 20250114
  Serious: Yes (Other)
  Sender: NOVARTIS
  Company Number: US-002147023-NVSC2023US200052

PATIENT
  Sex: Male

DRUGS (2)
  1. ZOMETA [Suspect]
     Active Substance: ZOLEDRONIC ACID
     Indication: Product used for unknown indication
     Dosage: UNK
     Route: 065
     Dates: start: 20230823
  2. ABIRATERONE [Concomitant]
     Active Substance: ABIRATERONE
     Indication: Neoplasm malignant
     Dosage: 1000 MG
     Route: 065

REACTIONS (7)
  - Neoplasm malignant [Unknown]
  - Pain [Unknown]
  - Gait disturbance [Unknown]
  - Bone pain [Unknown]
  - Back pain [Unknown]
  - Arthralgia [Unknown]
  - Influenza like illness [Unknown]
